FAERS Safety Report 21032654 (Version 2)
Quarter: 2022Q3

REPORT INFORMATION
  Report Type: Spontaneous
  Country: CH (occurrence: CH)
  Receive Date: 20220701
  Receipt Date: 20220729
  Transmission Date: 20221026
  Serious: Yes (Other)
  Sender: FDA-Public Use
  Company Number: CH-JNJFOC-20220647381

PATIENT
  Age: 59 Year
  Sex: Male

DRUGS (1)
  1. FENTANYL [Suspect]
     Active Substance: FENTANYL
     Indication: Pain in extremity
     Dosage: THREE PATCHES, ABOUT SIX HOURS 75UG OF FENTANYL PER HOUR
     Route: 062

REACTIONS (2)
  - Toxicity to various agents [Recovering/Resolving]
  - Drug diversion [Unknown]
